FAERS Safety Report 16841962 (Version 1)
Quarter: 2019Q3

REPORT INFORMATION
  Report Type: Spontaneous
  Country: UA (occurrence: UA)
  Receive Date: 20190923
  Receipt Date: 20190923
  Transmission Date: 20191005
  Serious: Yes (Death, Other)
  Sender: FDA-Public Use
  Company Number: PHHY2019UA213807

PATIENT
  Sex: Female

DRUGS (24)
  1. DOCETAXEL. [Suspect]
     Active Substance: DOCETAXEL
     Indication: BREAST CANCER
     Dosage: UNK
     Route: 065
     Dates: start: 20171110, end: 20171115
  2. FLUOROURACIL. [Suspect]
     Active Substance: FLUOROURACIL
     Dosage: UNK
     Route: 065
     Dates: end: 201712
  3. PREDNISONE. [Concomitant]
     Active Substance: PREDNISONE
     Dosage: 10 MG, UNK
     Route: 065
  4. PANTOPRAZOLE [Concomitant]
     Active Substance: PANTOPRAZOLE
     Indication: PRODUCT USED FOR UNKNOWN INDICATION
     Dosage: 40 MG, QD
     Route: 065
  5. CALCIUM PLUS VITAMIN D [Concomitant]
     Active Substance: CALCIUM\VITAMIN D
     Indication: PRODUCT USED FOR UNKNOWN INDICATION
     Dosage: 1000 MG/800 IU
     Route: 065
  6. DOCETAXEL. [Suspect]
     Active Substance: DOCETAXEL
     Dosage: UNK
     Route: 065
     Dates: end: 201712
  7. MITOXANTRONE [Suspect]
     Active Substance: MITOXANTRONE HYDROCHLORIDE
     Indication: BREAST CANCER
     Dosage: UNK
     Route: 065
     Dates: start: 20171110, end: 20171115
  8. VINORELBINE [Suspect]
     Active Substance: VINORELBINE TARTRATE
     Indication: BREAST CANCER
     Dosage: UNK
     Route: 065
     Dates: start: 20171110, end: 20171115
  9. CYCLOPHOSPHAMIDE. [Suspect]
     Active Substance: CYCLOPHOSPHAMIDE
     Dosage: UNK
     Route: 065
     Dates: end: 201712
  10. DOXORUBICIN [Suspect]
     Active Substance: DOXORUBICIN
     Dosage: UNK
     Route: 065
     Dates: end: 201712
  11. GEMCITABINE. [Suspect]
     Active Substance: GEMCITABINE
     Indication: BREAST CANCER
     Dosage: UNK
     Route: 065
     Dates: start: 20171110, end: 20171115
  12. CISPLATIN. [Suspect]
     Active Substance: CISPLATIN
     Indication: BREAST CANCER
     Dosage: UNK
     Route: 065
     Dates: start: 20171110, end: 20171115
  13. CISPLATIN. [Suspect]
     Active Substance: CISPLATIN
     Dosage: UNK
     Route: 065
     Dates: end: 201712
  14. MITOXANTRONE [Suspect]
     Active Substance: MITOXANTRONE HYDROCHLORIDE
     Dosage: UNK
     Route: 065
     Dates: end: 201712
  15. FLUOROURACIL. [Suspect]
     Active Substance: FLUOROURACIL
     Indication: BREAST CANCER
     Dosage: UNK
     Route: 065
     Dates: start: 20171110, end: 20171115
  16. CAPECITABINE. [Suspect]
     Active Substance: CAPECITABINE
     Indication: BREAST CANCER
     Dosage: UNK
     Route: 065
     Dates: start: 20171110, end: 20171115
  17. CYCLOPHOSPHAMIDE. [Suspect]
     Active Substance: CYCLOPHOSPHAMIDE
     Indication: BREAST CANCER
     Dosage: UNK
     Route: 065
     Dates: start: 20171110, end: 20171115
  18. BISOPROLOL [Concomitant]
     Active Substance: BISOPROLOL
     Indication: PRODUCT USED FOR UNKNOWN INDICATION
     Dosage: 5 MG, QD
     Route: 065
  19. POTASSIUM CHLORIDE. [Concomitant]
     Active Substance: POTASSIUM CHLORIDE
     Indication: PRODUCT USED FOR UNKNOWN INDICATION
     Dosage: 750 MG, QD
     Route: 065
  20. DOXORUBICIN [Suspect]
     Active Substance: DOXORUBICIN
     Indication: BREAST CANCER
     Dosage: UNK
     Route: 065
     Dates: start: 20171110, end: 20171115
  21. GEMCITABINE. [Suspect]
     Active Substance: GEMCITABINE
     Dosage: UNK
     Route: 065
     Dates: end: 201712
  22. VINORELBINE [Suspect]
     Active Substance: VINORELBINE TARTRATE
     Dosage: UNK
     Route: 065
     Dates: end: 201712
  23. CAPECITABINE. [Suspect]
     Active Substance: CAPECITABINE
     Dosage: UNK
     Route: 065
     Dates: end: 201712
  24. PREDNISONE. [Concomitant]
     Active Substance: PREDNISONE
     Indication: PRODUCT USED FOR UNKNOWN INDICATION
     Dosage: 40 MG, QD
     Route: 065

REACTIONS (11)
  - Muscular weakness [Unknown]
  - Metastases to bone [Unknown]
  - Metastases to lymph nodes [Unknown]
  - Metastases to liver [Unknown]
  - Back pain [Unknown]
  - Metastases to lung [Unknown]
  - Dyspnoea [Unknown]
  - Breast cancer recurrent [Unknown]
  - Treatment failure [Fatal]
  - Hydrothorax [Unknown]
  - Product use in unapproved indication [Unknown]

NARRATIVE: CASE EVENT DATE: 201712
